FAERS Safety Report 18201367 (Version 2)
Quarter: 2020Q3

REPORT INFORMATION
  Report Type: Spontaneous
  Country: US (occurrence: US)
  Receive Date: 20200827
  Receipt Date: 20200924
  Transmission Date: 20201103
  Serious: Yes (Other)
  Sender: FDA-Public Use
  Company Number: US-009507513-2008USA010558

PATIENT
  Sex: Female

DRUGS (2)
  1. TEMODAR [Suspect]
     Active Substance: TEMOZOLOMIDE
     Indication: GLIOBLASTOMA
     Dosage: 100 MILLIGRAM, DAILY
     Route: 048
     Dates: start: 20200820
  2. TEMOZOLOMIDE. [Suspect]
     Active Substance: TEMOZOLOMIDE
     Indication: GLIOBLASTOMA
     Dosage: UNK
     Route: 048

REACTIONS (5)
  - Product availability issue [Unknown]
  - Drug hypersensitivity [Not Recovered/Not Resolved]
  - Thrombocytopenia [Not Recovered/Not Resolved]
  - Haematemesis [Unknown]
  - Glioblastoma [Not Recovered/Not Resolved]

NARRATIVE: CASE EVENT DATE: 2020
